FAERS Safety Report 5387155-X (Version None)
Quarter: 2007Q3

REPORT INFORMATION
  Report Type: 
  Country: None (occurrence: None)
  Receive Date: 20070711
  Receipt Date: 20070626
  Transmission Date: 20080115
  Serious: Yes (Hospitalization)
  Sender: FDA-Public Use
  Company Number: 2007S1005784

PATIENT
  Age: 64 Year
  Sex: Male
  Weight: 96.3 kg

DRUGS (2)
  1. SUNITINIB [Suspect]
     Indication: RENAL CELL CARCINOMA STAGE UNSPECIFIED
     Dosage: 50 MG; DAILY; ORAL
     Route: 048
     Dates: start: 20070302, end: 20070318
  2. LISINOPRIL [Suspect]
     Dosage: 50 MG; ORAL
     Route: 048

REACTIONS (6)
  - HEPATIC FAILURE [None]
  - HEPATITIS [None]
  - INFLUENZA LIKE ILLNESS [None]
  - PANCREATITIS [None]
  - PLATELET COUNT DECREASED [None]
  - RENAL FAILURE [None]
